FAERS Safety Report 7341671-X (Version None)
Quarter: 2011Q1

REPORT INFORMATION
  Report Type: 
  Country: None (occurrence: None)
  Receive Date: 20110309
  Receipt Date: 20110301
  Transmission Date: 20110831
  Serious: No
  Sender: FDA-Public Use
  Company Number: US-PFIZER INC-2011012418

PATIENT
  Sex: Male
  Weight: 98.866 kg

DRUGS (5)
  1. ANDROGEL [Concomitant]
     Indication: BLOOD TESTOSTERONE ABNORMAL
     Dosage: UNK
  2. CABERGOLINE [Concomitant]
     Indication: BLOOD PROLACTIN
     Dosage: UNK
  3. SOMAVERT [Suspect]
     Indication: ACROMEGALY
  4. SOMAVERT [Suspect]
     Indication: PITUITARY TUMOUR BENIGN
     Dosage: 20 MG, 1X/DAY
     Route: 058
     Dates: start: 20100601
  5. METFORMIN [Concomitant]
     Indication: DIABETES MELLITUS
     Dosage: UNK

REACTIONS (10)
  - SINUSITIS [None]
  - FATIGUE [None]
  - NASAL CONGESTION [None]
  - FALL [None]
  - SPEECH DISORDER [None]
  - TONGUE DISORDER [None]
  - DYSPNOEA [None]
  - INSOMNIA [None]
  - RHINORRHOEA [None]
  - SWOLLEN TONGUE [None]
